FAERS Safety Report 7221028-2 (Version None)
Quarter: 2011Q1

REPORT INFORMATION
  Report Type: 
  Country: None (occurrence: None)
  Receive Date: 20110112
  Receipt Date: 20110107
  Transmission Date: 20110831
  Serious: No
  Sender: FDA-Public Use
  Company Number: US-PFIZER INC-2011005057

PATIENT
  Sex: Female
  Weight: 52.154 kg

DRUGS (5)
  1. PRISTIQ [Suspect]
     Indication: DEPRESSION
     Dosage: 50 MG, 1X/DAY
     Route: 048
     Dates: start: 20101201
  2. ZOLOFT [Suspect]
     Indication: ANXIETY
  3. LEXAPRO [Suspect]
     Indication: DEPRESSION
     Dosage: 10 MG, 1X/DAY
     Route: 048
     Dates: end: 20100101
  4. ZOLOFT [Suspect]
     Indication: DEPRESSION
     Dosage: 20 MG, 1X/DAY
     Route: 048
     Dates: end: 20100101
  5. LEXAPRO [Suspect]
     Indication: ANXIETY

REACTIONS (1)
  - NIGHT SWEATS [None]
